FAERS Safety Report 18883640 (Version 3)
Quarter: 2021Q2

REPORT INFORMATION
  Report Type: Spontaneous
  Country: US (occurrence: US)
  Receive Date: 20210211
  Receipt Date: 20210426
  Transmission Date: 20210717
  Serious: Yes (Other)
  Sender: FDA-Public Use
  Company Number: US-BEH-2021128277

PATIENT
  Age: 10 Year
  Sex: Female

DRUGS (4)
  1. EPIDIOLEX [Concomitant]
     Active Substance: CANNABIDIOL
     Route: 065
  2. HIZENTRA [Suspect]
     Active Substance: HUMAN IMMUNOGLOBULIN G
     Indication: SELECTIVE IGG SUBCLASS DEFICIENCY
     Dosage: 6 GRAM, QOW
     Route: 058
     Dates: start: 20200901
  3. HIZENTRA [Suspect]
     Active Substance: HUMAN IMMUNOGLOBULIN G
     Indication: HUMORAL IMMUNE DEFECT
     Dosage: 6 GRAM, QOW
     Route: 058
     Dates: start: 20200902
  4. HIZENTRA [Suspect]
     Active Substance: HUMAN IMMUNOGLOBULIN G
     Indication: EPILEPSY
     Dosage: 6 GRAM, QOW
     Route: 058
     Dates: start: 20200311

REACTIONS (10)
  - Aggression [Unknown]
  - No adverse event [Unknown]
  - Irritability [Unknown]
  - Weight decreased [Unknown]
  - Off label use [Unknown]
  - Pyrexia [Unknown]
  - Decreased appetite [Unknown]
  - Ileus [Unknown]
  - Hypersomnia [Unknown]
  - Sinusitis [Unknown]

NARRATIVE: CASE EVENT DATE: 202103
